FAERS Safety Report 7998747-3 (Version None)
Quarter: 2011Q4

REPORT INFORMATION
  Report Type: 
  Country: None (occurrence: None)
  Receive Date: 20111221
  Receipt Date: 20110922
  Transmission Date: 20120403
  Serious: Yes (Hospitalization, Other)
  Sender: FDA-Public Use
  Company Number: US-B.I. PHARMACEUTICALS,INC./RIDGEFIELD-2011-BP-18237BP

PATIENT
  Sex: Male
  Weight: 64.41 kg

DRUGS (8)
  1. DIGOXIN [Concomitant]
     Indication: ATRIAL FIBRILLATION
     Dosage: 0.125 MG
     Route: 048
     Dates: start: 20110601
  2. PRADAXA [Suspect]
     Indication: ATRIAL FIBRILLATION
     Dosage: 300 MG
     Route: 048
     Dates: start: 20110401, end: 20110713
  3. CRESTOR [Concomitant]
     Indication: BLOOD CHOLESTEROL INCREASED
     Dosage: 40 MG
     Route: 048
     Dates: start: 20000101
  4. NITROSTAT [Concomitant]
     Indication: CHEST PAIN
     Route: 060
  5. DIGOXIN [Concomitant]
     Dosage: 0.5 MG
     Route: 048
  6. ASPIRIN [Concomitant]
     Indication: ATRIAL FIBRILLATION
  7. ADVAIR DISKUS 100/50 [Concomitant]
     Indication: CHRONIC OBSTRUCTIVE PULMONARY DISEASE
     Dosage: 2 PUF
     Route: 055
     Dates: start: 20080101
  8. PRILOSEC [Concomitant]
     Dosage: 80 MG
     Route: 048

REACTIONS (3)
  - ANAEMIA [None]
  - MELAENA [None]
  - GASTRIC HAEMORRHAGE [None]
